FAERS Safety Report 4830965-5 (Version None)
Quarter: 2005Q4

REPORT INFORMATION
  Report Type: 
  Country: None (occurrence: None)
  Receive Date: 20051114
  Receipt Date: 20051028
  Transmission Date: 20060501
  Serious: Yes (Hospitalization)
  Sender: FDA-Public Use
  Company Number: 2005-02294

PATIENT
  Age: 65 Year
  Sex: Male
  Weight: 75.9 kg

DRUGS (11)
  1. VELCADE [Suspect]
     Indication: MULTIPLE MYELOMA
     Dosage: 2.50 MG, SINGLE, INTRAVENOUS
     Route: 042
     Dates: start: 20051017, end: 20051017
  2. MORPHINE SULFATE [Concomitant]
  3. METOPROLOL SUCCINATE [Concomitant]
  4. DOXIUM (CALCIUM DOBESILATE) [Concomitant]
  5. TOREM (TORASEMIDE) [Concomitant]
  6. AREDIA [Concomitant]
  7. MEPHANOL (ALLOPURINOL) [Concomitant]
  8. PARAGAR (PHENOLPHTHALEIN, PARAFFIN, LIQUID, AGAR) [Concomitant]
  9. DIAMICRON (GLICLAZIDE) [Concomitant]
  10. PANTOPRAZOLE SODIUM [Concomitant]
  11. ZOFRAN [Concomitant]

REACTIONS (6)
  - CHILLS [None]
  - COOMBS TEST POSITIVE [None]
  - HAEMOLYTIC ANAEMIA [None]
  - NEUTROPENIA [None]
  - PYREXIA [None]
  - THROMBOCYTOPENIA [None]
